FAERS Safety Report 5487066-5 (Version None)
Quarter: 2007Q3

REPORT INFORMATION
  Report Type: 
  Country: None (occurrence: None)
  Receive Date: 20070925
  Receipt Date: 20070702
  Transmission Date: 20080115
  Serious: No
  Sender: FDA-Public Use
  Company Number: 2007US001556

PATIENT
  Age: 72 Year
  Sex: Female

DRUGS (9)
  1. VESICARE [Suspect]
     Indication: URINARY INCONTINENCE
     Dosage: 10 MG, ORAL 5 MG, ORAL
     Route: 048
     Dates: start: 20070201
  2. LEVOTHYROXIN                     KSA (LEVOTHYROXINE) [Concomitant]
  3. ASPIRIN [Concomitant]
  4. METOPROLOL TARTRATE [Concomitant]
  5. KLOR-CON [Concomitant]
  6. FUROSEMIDE (FUROSEMIDE SODIUM) [Concomitant]
  7. FLECAINIDE ACETATE [Concomitant]
  8. TRILEPTAL [Concomitant]
  9. MULTIVITAMIN [Concomitant]

REACTIONS (1)
  - DRUG INEFFECTIVE [None]
